FAERS Safety Report 21189964 (Version 3)
Quarter: 2022Q3

REPORT INFORMATION
  Report Type: Report from Study
  Country: US (occurrence: US)
  Receive Date: 20220809
  Receipt Date: 20220830
  Transmission Date: 20221026
  Serious: Yes (Hospitalization)
  Sender: FDA-Public Use
  Company Number: US-GLAXOSMITHKLINE-US2022GSK114016

PATIENT

DRUGS (3)
  1. NIRAPARIB [Suspect]
     Active Substance: NIRAPARIB
     Indication: Pancreatic carcinoma
     Dosage: 200 MG, QD
     Route: 048
     Dates: start: 20220714, end: 20220728
  2. DOSTARLIMAB [Suspect]
     Active Substance: DOSTARLIMAB
     Indication: Pancreatic carcinoma
     Dosage: 500 MG, Z-Q3W
     Route: 042
     Dates: start: 20220714, end: 20220714
  3. DOSTARLIMAB [Suspect]
     Active Substance: DOSTARLIMAB
     Dosage: 500 MG, Z-Q3W
     Route: 042
     Dates: start: 20220802, end: 20220802

REACTIONS (1)
  - Adult failure to thrive [Unknown]

NARRATIVE: CASE EVENT DATE: 20220822
